FAERS Safety Report 9729500 (Version 1)
Quarter: 2013Q4

REPORT INFORMATION
  Report Type: Spontaneous
  Country: US (occurrence: US)
  Receive Date: 20131204
  Receipt Date: 20131204
  Transmission Date: 20140711
  Serious: No
  Sender: FDA-Public Use
  Company Number: US-GILEAD-2009-0022038

PATIENT
  Sex: Female

DRUGS (8)
  1. LETAIRIS [Suspect]
     Indication: PULMONARY ARTERIAL HYPERTENSION
     Route: 048
     Dates: start: 20090115
  2. REVATIO [Concomitant]
  3. BABY ASPIRIN [Concomitant]
  4. SPIRONOLACTONE [Concomitant]
  5. SIMVASTATIN [Concomitant]
  6. ACIPHEX [Concomitant]
  7. CALCIUM + D [Concomitant]
  8. MULTIVITAMIN/FL CHEW [Concomitant]

REACTIONS (1)
  - Nasal congestion [Not Recovered/Not Resolved]
